FAERS Safety Report 16137667 (Version 8)
Quarter: 2020Q2

REPORT INFORMATION
  Report Type: Spontaneous
  Country: BR (occurrence: BR)
  Receive Date: 20190401
  Receipt Date: 20200427
  Transmission Date: 20200713
  Serious: Yes (Hospitalization, Other)
  Sender: FDA-Public Use
  Company Number: BR-GLAXOSMITHKLINE-BR2017GSK072615

PATIENT
  Sex: Female
  Weight: 79 kg

DRUGS (5)
  1. REUQUINOL (HYDROXYCHLOROQUINE SULFATE) [Concomitant]
     Active Substance: HYDROXYCHLOROQUINE SULFATE
     Indication: PRODUCT USED FOR UNKNOWN INDICATION
     Dosage: UNK
  2. BENLYSTA [Suspect]
     Active Substance: BELIMUMAB
     Indication: SYSTEMIC LUPUS ERYTHEMATOSUS
     Dosage: 730 MG, UNK
     Dates: start: 20170407
  3. BENLYSTA [Suspect]
     Active Substance: BELIMUMAB
     Dosage: 780 MG, UNK
  4. PREDNISONE. [Concomitant]
     Active Substance: PREDNISONE
     Indication: PRODUCT USED FOR UNKNOWN INDICATION
     Dosage: UNK
  5. BENLYSTA [Suspect]
     Active Substance: BELIMUMAB
     Dosage: 790 UNK, UNK

REACTIONS (18)
  - Pyrexia [Recovered/Resolved]
  - Cough [Unknown]
  - Asthenia [Unknown]
  - Weight increased [Unknown]
  - Product dose omission [Recovered/Resolved]
  - Social problem [Unknown]
  - Pharyngeal inflammation [Unknown]
  - Bone disorder [Unknown]
  - Underdose [Recovered/Resolved]
  - Fatigue [Not Recovered/Not Resolved]
  - Condition aggravated [Unknown]
  - Weight fluctuation [Unknown]
  - Hip surgery [Unknown]
  - Oropharyngeal pain [Unknown]
  - Pain [Recovered/Resolved]
  - Overdose [Recovered/Resolved]
  - Inappropriate schedule of product administration [Recovered/Resolved]
  - Influenza [Unknown]
